FAERS Safety Report 16534271 (Version 3)
Quarter: 2019Q4

REPORT INFORMATION
  Report Type: Spontaneous
  Country: DE (occurrence: DE)
  Receive Date: 20190705
  Receipt Date: 20191002
  Transmission Date: 20200122
  Serious: Yes (Other)
  Sender: FDA-Public Use
  Company Number: DE-AUROBINDO-AUR-APL-2019-037276

PATIENT
  Sex: Female

DRUGS (11)
  1. LYRICA [Concomitant]
     Active Substance: PREGABALIN
     Indication: NEUROPATHY PERIPHERAL
     Dosage: UNK, 150-300-300 (TOTAL 750)
     Route: 065
     Dates: start: 2014
  2. LACOSAMIDE FILM COATED TABLETS [Suspect]
     Active Substance: LACOSAMIDE
     Dosage: 50 MILLIGRAM, ONCE A DAY, 50 MG, 2/DAY (BID) 50-0-50
     Route: 065
     Dates: start: 20141216, end: 20141218
  3. LEVETIRACETAM. [Suspect]
     Active Substance: LEVETIRACETAM
     Dosage: 6000 MILLIGRAM, ONCE A DAY
     Route: 065
     Dates: start: 20141215, end: 20141215
  4. LACOSAMIDE FILM COATED TABLETS [Suspect]
     Active Substance: LACOSAMIDE
     Dosage: 200 MILLIGRAM, ONCE A DAY
     Route: 048
     Dates: start: 201406, end: 2014
  5. LEVETIRACETAM. [Suspect]
     Active Substance: LEVETIRACETAM
     Dosage: UNK, ONCE A DAY, 1000-1000-500-1000, 4X/DAY (QID)
     Route: 065
     Dates: start: 20141216
  6. LACOSAMIDE FILM COATED TABLETS [Suspect]
     Active Substance: LACOSAMIDE
     Indication: EPILEPSY
     Dosage: 100 MILLIGRAM, ONCE A DAY
     Route: 065
     Dates: start: 2014, end: 20141215
  7. LEVETIRACETAM. [Suspect]
     Active Substance: LEVETIRACETAM
     Indication: EPILEPSY
     Dosage: UNK, DOSE INCREASED
     Route: 065
     Dates: start: 2014, end: 2014
  8. LEVETIRACETAM. [Suspect]
     Active Substance: LEVETIRACETAM
     Dosage: 3000 MILLIGRAM, ONCE A DAY,3000 MG, 2X/DAY (BID)
     Route: 065
     Dates: start: 20141215, end: 20141215
  9. LACOSAMIDE FILM COATED TABLETS [Suspect]
     Active Substance: LACOSAMIDE
     Dosage: 100 MILLIGRAM, ONCE A DAY
     Route: 065
     Dates: start: 20141216, end: 20141218
  10. LEVETIRACETAM. [Suspect]
     Active Substance: LEVETIRACETAM
     Dosage: UNK UNK, ONCE A DAY,1500-500-1500 (TOTAL: 3500 MG), 3X/DAY (TID)
     Route: 065
  11. LEVETIRACETAM. [Suspect]
     Active Substance: LEVETIRACETAM
     Dosage: UNK, DOSE REDUCTION (750 MG X2): DAILY DOSE 1500 MG
     Route: 065
     Dates: start: 201406, end: 2014

REACTIONS (5)
  - Maternal exposure during pregnancy [Unknown]
  - Maternal exposure during breast feeding [Unknown]
  - Overdose [Unknown]
  - Premature delivery [Unknown]
  - Off label use [Unknown]

NARRATIVE: CASE EVENT DATE: 20141113
